FAERS Safety Report 21578548 (Version 2)
Quarter: 2023Q2

REPORT INFORMATION
  Report Type: Report from Study
  Country: BR (occurrence: BR)
  Receive Date: 20221110
  Receipt Date: 20230426
  Transmission Date: 20230721
  Serious: Yes (Other)
  Sender: FDA-Public Use
  Company Number: BR-JNJFOC-20221105056

PATIENT
  Sex: Male

DRUGS (2)
  1. REMICADE [Suspect]
     Active Substance: INFLIXIMAB
     Indication: Psoriatic arthropathy
     Dosage: 10 AMPOULES
     Route: 041
     Dates: start: 20180515, end: 202003
  2. SECUKINUMAB [Concomitant]
     Active Substance: SECUKINUMAB
     Route: 057

REACTIONS (10)
  - Tachycardia [Unknown]
  - Vascular pain [Unknown]
  - Dyspnoea [Unknown]
  - Blood pressure increased [Unknown]
  - Deafness [Unknown]
  - Accident at home [Unknown]
  - Limb traumatic amputation [Unknown]
  - Infusion related reaction [Unknown]
  - Limb injury [Unknown]
  - Tinnitus [Unknown]
